FAERS Safety Report 10155176 (Version 1)
Quarter: 2014Q2

REPORT INFORMATION
  Report Type: Spontaneous
  Country: TR (occurrence: TR)
  Receive Date: 20140506
  Receipt Date: 20140506
  Transmission Date: 20141212
  Serious: Yes (Other)
  Sender: FDA-Public Use
  Company Number: TR-TEVA-479131ISR

PATIENT
  Age: 76 Year
  Sex: Female
  Weight: 52 kg

DRUGS (3)
  1. TAMOXIFEN TEVA 20 MG [Suspect]
     Dosage: 20 MILLIGRAM DAILY; 1 TAB OF 10 MG  TWICE A DAY
     Route: 048
     Dates: start: 20130401, end: 20140402
  2. TAMOXIFEN TEVA 20 MG [Suspect]
     Dosage: 20 MILLIGRAM DAILY; 2 TABS OF 10 MG  ONCE A DAY
     Route: 048
     Dates: start: 20140403, end: 20140421
  3. BONVIVA [Concomitant]

REACTIONS (9)
  - Strabismus [Recovered/Resolved]
  - Ageusia [Not Recovered/Not Resolved]
  - Diplopia [Recovered/Resolved]
  - Hypoaesthesia [Not Recovered/Not Resolved]
  - Sensory loss [Not Recovered/Not Resolved]
  - Somnolence [Not Recovered/Not Resolved]
  - Balance disorder [Not Recovered/Not Resolved]
  - Bone pain [Not Recovered/Not Resolved]
  - Abasia [Not Recovered/Not Resolved]
